FAERS Safety Report 22179599 (Version 2)
Quarter: 2023Q2

REPORT INFORMATION
  Report Type: Spontaneous
  Country: US (occurrence: US)
  Receive Date: 20230406
  Receipt Date: 20230515
  Transmission Date: 20230722
  Serious: No
  Sender: FDA-Public Use
  Company Number: None

PATIENT
  Age: 63 Year
  Sex: Female

DRUGS (5)
  1. FUROSEMIDE [Suspect]
     Active Substance: FUROSEMIDE
     Indication: Product used for unknown indication
     Route: 065
     Dates: start: 2012
  2. FUROSEMIDE [Suspect]
     Active Substance: FUROSEMIDE
     Route: 065
     Dates: start: 2023
  3. ENTRESTO [Concomitant]
     Active Substance: SACUBITRIL\VALSARTAN
     Indication: Product used for unknown indication
     Dosage: 24/26 MG
     Route: 065
     Dates: start: 202209
  4. LOSARTAN [Concomitant]
     Active Substance: LOSARTAN
     Indication: Product used for unknown indication
     Route: 065
     Dates: start: 202206, end: 202209
  5. CARVEDILOL [Concomitant]
     Active Substance: CARVEDILOL
     Indication: Product used for unknown indication
     Route: 065
     Dates: start: 202206

REACTIONS (4)
  - Nasal congestion [Not Recovered/Not Resolved]
  - Epistaxis [Recovered/Resolved]
  - Dyspnoea [Recovering/Resolving]
  - Weight fluctuation [Unknown]

NARRATIVE: CASE EVENT DATE: 20220601
